FAERS Safety Report 7553517-5 (Version None)
Quarter: 2011Q2

REPORT INFORMATION
  Report Type: 
  Country: None (occurrence: None)
  Receive Date: 20110617
  Receipt Date: 20110606
  Transmission Date: 20111010
  Serious: Yes (Other)
  Sender: FDA-Public Use
  Company Number: US-BAYER-201021252NA

PATIENT
  Age: 27 Year
  Sex: Female
  Weight: 80.909 kg

DRUGS (8)
  1. YASMIN [Suspect]
     Indication: ORAL CONTRACEPTION
     Route: 048
     Dates: start: 20000101, end: 20090101
  2. YAZ [Suspect]
     Route: 048
     Dates: start: 20020101
  3. DARVOCET-N 50 [Concomitant]
  4. XANAX [Concomitant]
  5. HYOSCYAMINE SULFATE [Concomitant]
  6. TRIMETHOBENZAMIDE HCL [Concomitant]
  7. CELEXA [Concomitant]
  8. DROSPIRENONE AND ETHINYL ESTRADIOL [Suspect]
     Route: 048
     Dates: start: 20000101, end: 20090101

REACTIONS (9)
  - NAUSEA [None]
  - VOMITING [None]
  - ABDOMINAL PAIN [None]
  - ABDOMINAL DISCOMFORT [None]
  - ABDOMINAL DISTENSION [None]
  - GALLBLADDER DISORDER [None]
  - WEIGHT DECREASED [None]
  - ABDOMINAL PAIN LOWER [None]
  - DIARRHOEA [None]
